FAERS Safety Report 9726213 (Version 1)
Quarter: 2013Q4

REPORT INFORMATION
  Report Type: Report from Study
  Country: US (occurrence: US)
  Receive Date: 20131203
  Receipt Date: 20131203
  Transmission Date: 20140711
  Serious: Yes (Hospitalization, Disabling, Other)
  Sender: FDA-Public Use
  Company Number: US-ASTRAZENECA-2013SE78098

PATIENT
  Age: 59 Year
  Sex: Female
  Weight: 68 kg

DRUGS (16)
  1. METOPROLOL SUCCINATE [Suspect]
     Indication: HYPERTENSION
     Route: 048
     Dates: start: 201002
  2. CRESTOR [Suspect]
     Indication: BLOOD CHOLESTEROL INCREASED
     Route: 048
     Dates: start: 2006
  3. CRESTOR [Suspect]
     Indication: BLOOD CHOLESTEROL INCREASED
     Route: 048
     Dates: start: 201301
  4. CRESTOR [Suspect]
     Indication: BLOOD CHOLESTEROL INCREASED
     Route: 048
  5. DEXILANT [Concomitant]
     Indication: GASTROOESOPHAGEAL REFLUX DISEASE
     Dates: start: 2010
  6. RANITIDINE [Concomitant]
     Indication: GASTROOESOPHAGEAL REFLUX DISEASE
     Dates: start: 2012
  7. ASPRIN [Concomitant]
     Indication: STENT PLACEMENT
  8. PLAQUENILS [Concomitant]
     Indication: SCLERODERMA
  9. PLAQUENILS [Concomitant]
     Indication: RAYNAUD^S PHENOMENON
  10. AMLODIPINE BESYLATE [Concomitant]
     Indication: BLOOD PRESSURE ABNORMAL
     Dates: start: 201303
  11. EFFEXOR ER [Concomitant]
     Indication: DEPRESSION
  12. VALTREX [Concomitant]
     Indication: GENITAL HERPES
     Dosage: 500 MG DAILY PRN
     Dates: start: 2000
  13. FISH OIL [Concomitant]
     Indication: SUPPLEMENTATION THERAPY
     Dates: start: 2011
  14. CALCIUM [Concomitant]
     Indication: SUPPLEMENTATION THERAPY
  15. SYSTANE EYEDROPS [Concomitant]
     Indication: DRY EYE
     Dosage: 2 DROPS IN EACH EYE BID
     Route: 050
     Dates: start: 2012
  16. AMLODIPINE [Concomitant]

REACTIONS (17)
  - Fatigue [Not Recovered/Not Resolved]
  - Coronary artery occlusion [Unknown]
  - Depression [Unknown]
  - Raynaud^s phenomenon [Not Recovered/Not Resolved]
  - Scleroderma [Not Recovered/Not Resolved]
  - Fibromyalgia [Not Recovered/Not Resolved]
  - Connective tissue disorder [Not Recovered/Not Resolved]
  - Autoimmune disorder [Not Recovered/Not Resolved]
  - Sjogren^s syndrome [Not Recovered/Not Resolved]
  - Coronary artery disease [Unknown]
  - Malaise [Not Recovered/Not Resolved]
  - Condition aggravated [Not Recovered/Not Resolved]
  - Nasopharyngitis [Unknown]
  - Hypertension [Unknown]
  - Barrett^s oesophagus [Not Recovered/Not Resolved]
  - Malaise [Unknown]
  - Intentional drug misuse [Unknown]
